FAERS Safety Report 17523871 (Version 1)
Quarter: 2020Q1

REPORT INFORMATION
  Report Type: Spontaneous
  Country: GB (occurrence: GB)
  Receive Date: 20200310
  Receipt Date: 20200310
  Transmission Date: 20200409
  Serious: Yes (Death, Life-Threatening)
  Sender: FDA-Public Use
  Company Number: GB-PFIZER INC-02H-167-0114995-00

PATIENT
  Age: 63 Year
  Sex: Female
  Weight: 89 kg

DRUGS (9)
  1. FENTANYL CITRATE. [Suspect]
     Active Substance: FENTANYL CITRATE
     Dosage: 0.25 MG, UNK
     Route: 042
     Dates: start: 200007, end: 200007
  2. PERINDOPRIL [Concomitant]
     Active Substance: PERINDOPRIL
     Dosage: UNK
     Route: 048
  3. PROPOFOL. [Suspect]
     Active Substance: PROPOFOL
     Indication: INDUCTION OF ANAESTHESIA
     Dosage: UNK
     Dates: start: 199912
  4. PANCURONIUM BROMIDE. [Concomitant]
     Active Substance: PANCURONIUM BROMIDE
     Dosage: 6 MG, UNK
     Route: 042
     Dates: start: 200007, end: 200007
  5. PROPOFOL. [Suspect]
     Active Substance: PROPOFOL
     Dosage: 150 MG, UNK
     Route: 042
     Dates: start: 200007, end: 200007
  6. LEVOTHYROXINE SODIUM. [Concomitant]
     Active Substance: LEVOTHYROXINE SODIUM
     Dosage: UNK
     Route: 048
     Dates: start: 1999
  7. SOTALOL. [Concomitant]
     Active Substance: SOTALOL
     Dosage: FREQ: UNKNOWN
     Route: 048
  8. FENTANYL CITRATE. [Suspect]
     Active Substance: FENTANYL CITRATE
     Indication: INDUCTION OF ANAESTHESIA
     Dosage: UNK
     Dates: start: 199912
  9. MIDAZOLAM HYDROCHLORIDE. [Concomitant]
     Active Substance: MIDAZOLAM HYDROCHLORIDE
     Dosage: 5 MG, UNK
     Route: 042
     Dates: start: 200007, end: 200007

REACTIONS (1)
  - Anaphylactic reaction [Fatal]

NARRATIVE: CASE EVENT DATE: 200007
